FAERS Safety Report 24025821 (Version 3)
Quarter: 2024Q3

REPORT INFORMATION
  Report Type: Report from Study
  Country: BG (occurrence: BG)
  Receive Date: 20240628
  Receipt Date: 20240710
  Transmission Date: 20241016
  Serious: No
  Sender: ROCHE
  Company Number: BG-ROCHE-3211963

PATIENT
  Age: 76 Year
  Sex: Female
  Weight: 60.0 kg

DRUGS (2)
  1. ALECTINIB [Suspect]
     Active Substance: ALECTINIB
     Indication: Non-small cell lung cancer
     Route: 048
     Dates: start: 20210916
  2. ALECTINIB [Concomitant]
     Active Substance: ALECTINIB
     Indication: Lung neoplasm malignant
     Dates: start: 20200624

REACTIONS (2)
  - Abdominal pain upper [Recovered/Resolved]
  - Dysphonia [Recovered/Resolved]

NARRATIVE: CASE EVENT DATE: 20220308
